FAERS Safety Report 16861790 (Version 3)
Quarter: 2020Q2

REPORT INFORMATION
  Report Type: Report from Study
  Country: US (occurrence: US)
  Receive Date: 20190927
  Receipt Date: 20200504
  Transmission Date: 20200713
  Serious: Yes (Hospitalization)
  Sender: FDA-Public Use
  Company Number: US-ACTELION-A-NJ2019-196155

PATIENT
  Age: 48 Year
  Sex: Female
  Weight: 57.6 kg

DRUGS (3)
  1. SILDENAFIL. [Concomitant]
     Active Substance: SILDENAFIL
  2. AMBRISENTAN [Concomitant]
     Active Substance: AMBRISENTAN
  3. UPTRAVI [Suspect]
     Active Substance: SELEXIPAG
     Indication: PULMONARY ARTERIAL HYPERTENSION
     Dosage: 600 MCG, BID
     Route: 048

REACTIONS (13)
  - Clavicle fracture [Unknown]
  - Rhinorrhoea [Unknown]
  - Lower limb fracture [Unknown]
  - Head injury [Unknown]
  - Cough [Unknown]
  - Paranasal sinus discomfort [Unknown]
  - Nasopharyngitis [Unknown]
  - Fall [Unknown]
  - Brain stem haemorrhage [Unknown]
  - Concussion [Unknown]
  - Loss of consciousness [Unknown]
  - Limb operation [Unknown]
  - Nasal congestion [Unknown]

NARRATIVE: CASE EVENT DATE: 20200413
